FAERS Safety Report 20760665 (Version 1)
Quarter: 2022Q2

REPORT INFORMATION
  Report Type: Spontaneous
  Country: FR (occurrence: FR)
  Receive Date: 20220428
  Receipt Date: 20220428
  Transmission Date: 20220720
  Serious: Yes (Death, Other)
  Sender: FDA-Public Use
  Company Number: FR-AFSSAPS-AVBX20220146

PATIENT
  Age: 16 Year
  Sex: Female

DRUGS (2)
  1. TRAMADOL [Suspect]
     Active Substance: TRAMADOL
     Indication: Product used for unknown indication
     Dosage: UNK (LARGE QUANTITIES, SINGLE DOSE)
     Route: 048
     Dates: start: 20220121
  2. CODEINE [Suspect]
     Active Substance: CODEINE
     Indication: Product used for unknown indication
     Dosage: UNK (LARGE QUANTITIES, SINGLE DOSE)
     Route: 048
     Dates: start: 20220121

REACTIONS (1)
  - Coma [Fatal]

NARRATIVE: CASE EVENT DATE: 20220121
